FAERS Safety Report 23696535 (Version 1)
Quarter: 2024Q2

REPORT INFORMATION
  Report Type: Report from Study
  Country: BR (occurrence: BR)
  Receive Date: 20240402
  Receipt Date: 20240402
  Transmission Date: 20240716
  Serious: Yes (Other)
  Sender: FDA-Public Use
  Company Number: BR-CELLTRION INC.-2023BR018155

PATIENT

DRUGS (10)
  1. INFLIXIMAB [Suspect]
     Active Substance: INFLIXIMAB
     Indication: Crohn^s disease
     Dosage: 100 MG; 5 AMPOULES EVERY 8 WEEKS
     Route: 042
     Dates: start: 20221108
  2. CITALOPRAM [Concomitant]
     Active Substance: CITALOPRAM\CITALOPRAM HYDROBROMIDE
     Indication: Schizophrenia
     Dosage: 1 PILL A DAY STARTED 8 YEARS AGO
     Route: 048
  3. DIAZEPAM [Concomitant]
     Active Substance: DIAZEPAM
     Indication: Schizophrenia
     Dosage: 1 PILL A DAY STARTED 8 YEARS AGO
     Route: 048
  4. QUETIAPINE [Concomitant]
     Active Substance: QUETIAPINE
     Indication: Schizophrenia
     Dosage: 1 PILL A DAY STARTED 8 YEARS AGO
     Route: 048
  5. ALPRAZOLAM [Concomitant]
     Active Substance: ALPRAZOLAM
     Indication: Schizophrenia
     Dosage: 1 PILL A DAY STARTED 8 YEARS AGO
     Route: 048
  6. ZUCLOPENTHIXOL [Concomitant]
     Active Substance: ZUCLOPENTHIXOL
     Indication: Schizophrenia
     Dosage: 1 PILL EVERY 14 DAYS STARTED 8 YEARS AGO
     Route: 048
  7. BIPERIDEN [Concomitant]
     Active Substance: BIPERIDEN
     Indication: Schizophrenia
     Dosage: 2 PILLS A DAY STARTED 8 YEARS AGO
     Route: 048
  8. PROMETHAZINE [Concomitant]
     Active Substance: PROMETHAZINE HYDROCHLORIDE
     Indication: Schizophrenia
     Dosage: 2 PILLS A DAY STARTED 8 YEARS AGO
     Route: 048
  9. MESALAMINE [Concomitant]
     Active Substance: MESALAMINE
     Indication: Crohn^s disease
     Dosage: 2 PILLS A DAY
     Route: 048
     Dates: start: 2023
  10. MESALAMINE [Concomitant]
     Active Substance: MESALAMINE
     Dosage: UNK

REACTIONS (11)
  - Crohn^s disease [Unknown]
  - White blood cell count increased [Unknown]
  - Polymerase chain reaction negative [Unknown]
  - Rhinorrhoea [Unknown]
  - Influenza [Unknown]
  - Pyrexia [Recovering/Resolving]
  - Dyspnoea [Unknown]
  - Platelet count decreased [Unknown]
  - Product distribution issue [Unknown]
  - Intentional dose omission [Unknown]
  - Therapy interrupted [Unknown]

NARRATIVE: CASE EVENT DATE: 20230905
